FAERS Safety Report 17119817 (Version 1)
Quarter: 2019Q4

REPORT INFORMATION
  Report Type: Spontaneous
  Country: GB (occurrence: GB)
  Receive Date: 20191206
  Receipt Date: 20191206
  Transmission Date: 20200122
  Serious: Yes (Disabling)
  Sender: FDA-Public Use
  Company Number: GB-TEVA-2019-GB-1147012

PATIENT
  Age: 77 Year
  Sex: Male
  Weight: 72 kg

DRUGS (12)
  1. PROPRANOLOL [Suspect]
     Active Substance: PROPRANOLOL HYDROCHLORIDE
     Dosage: TAKE ONE TABLET TWO OR THREE TIMES A DAY.
     Dates: start: 20191016, end: 20191027
  2. DIAZEPAM. [Concomitant]
     Active Substance: DIAZEPAM
     Dosage: TAKE ONE OR TWO TABLETS THREE TIMES PER DAY AS REQUIRED
     Dates: start: 20191016
  3. CLOPIDOGREL [Concomitant]
     Active Substance: CLOPIDOGREL BISULFATE
     Dosage: 1 DF
     Dates: start: 20190507
  4. AMOXICILLIN. [Concomitant]
     Active Substance: AMOXICILLIN
     Dosage: 3 DF
     Dates: start: 20191004, end: 20191011
  5. OMEPRAZOLE. [Concomitant]
     Active Substance: OMEPRAZOLE
     Indication: DYSPEPSIA
     Dosage: 1 DF
     Dates: start: 20190704
  6. STANEK [Concomitant]
     Dosage: 7 DF AS DIRECTED BY HOSPITAL
     Dates: start: 20190507
  7. SERTRALINE [Concomitant]
     Active Substance: SERTRALINE HYDROCHLORIDE
     Dosage: 0.5 DF
     Dates: start: 20190404
  8. NITROFURANTOIN. [Concomitant]
     Active Substance: NITROFURANTOIN
     Dosage: 2 DF
     Dates: start: 20191016, end: 20191023
  9. ROTIGOTINE [Concomitant]
     Active Substance: ROTIGOTINE
     Dosage: 1 DF MORNING.
     Route: 062
     Dates: start: 20190507
  10. CO-BENELDOPA [Concomitant]
     Active Substance: BENSERAZIDE HYDROCHLORIDE\LEVODOPA
     Dosage: TAKE ONE TABLET ON WAKING IN THE MORNING
     Dates: start: 20190507
  11. CLONAZEPAM. [Concomitant]
     Active Substance: CLONAZEPAM
     Dosage: 1 DF AT NIGHT
     Dates: start: 20190507
  12. SAFINAMIDE [Concomitant]
     Active Substance: SAFINAMIDE
     Dosage: 1 DF
     Dates: start: 20190704

REACTIONS (1)
  - Muscle disorder [Unknown]
